FAERS Safety Report 18301096 (Version 1)
Quarter: 2020Q3

REPORT INFORMATION
  Report Type: Other
  Country: CH (occurrence: CH)
  Receive Date: 20200923
  Receipt Date: 20200923
  Transmission Date: 20201103
  Serious: Yes (Disabling, Other)
  Sender: FDA-Public Use
  Company Number: CH-ASTELLAS-2020US032720

PATIENT
  Age: 68 Year
  Sex: Male

DRUGS (1)
  1. PROGRAF [Suspect]
     Active Substance: TACROLIMUS
     Indication: ALLOGENIC STEM CELL TRANSPLANTATION
     Dosage: 1 MG, ONCE DAILY (1 MG/24H VIA THE VENOUS ROUTE)
     Route: 041
     Dates: start: 20200803, end: 20200831

REACTIONS (9)
  - Staphylococcal bacteraemia [Unknown]
  - Catheter site thrombosis [Unknown]
  - Thrombophlebitis septic [Unknown]
  - Product use in unapproved indication [Unknown]
  - Gastrointestinal inflammation [Unknown]
  - Post transplant distal limb syndrome [Recovered/Resolved]
  - Spinal osteoarthritis [Unknown]
  - Staphylococcal infection [Unknown]
  - Abdominal pain [Recovered/Resolved]

NARRATIVE: CASE EVENT DATE: 20200803
